FAERS Safety Report 7171007-9 (Version None)
Quarter: 2010Q4

REPORT INFORMATION
  Report Type: 
  Country: None (occurrence: None)
  Receive Date: 20101217
  Receipt Date: 20101210
  Transmission Date: 20110411
  Serious: Yes (Other)
  Sender: FDA-Public Use
  Company Number: US-BRACCO-005673

PATIENT
  Sex: Female
  Weight: 75.4 kg

DRUGS (4)
  1. MULTIHANCE [Suspect]
     Indication: SYNCOPE
     Dosage: 1.2 ML/SEC
     Route: 042
     Dates: start: 20101207, end: 20101207
  2. MULTIHANCE [Suspect]
     Indication: DIZZINESS
     Dosage: 1.2 ML/SEC
     Route: 042
     Dates: start: 20101207, end: 20101207
  3. MULTIHANCE [Suspect]
     Indication: ANGIOGRAM
     Dosage: 1.2 ML/SEC
     Route: 042
     Dates: start: 20101207, end: 20101207
  4. FIORICET [Concomitant]
     Indication: TENSION HEADACHE
     Dosage: TAKEN AS NEEDED

REACTIONS (4)
  - FEELING ABNORMAL [None]
  - HYPOAESTHESIA [None]
  - LOSS OF CONSCIOUSNESS [None]
  - VOMITING [None]
